FAERS Safety Report 22259835 (Version 1)
Quarter: 2023Q2

REPORT INFORMATION
  Report Type: Other
  Country: None (occurrence: FR)
  Receive Date: 20230427
  Receipt Date: 20230427
  Transmission Date: 20230721
  Serious: Yes (Hospitalization)
  Sender: FDA-Public Use
  Company Number: FR-Canton Laboratories, LLC-2140841

PATIENT
  Sex: Female

DRUGS (1)
  1. NAPROSYN [Suspect]
     Active Substance: NAPROXEN
     Indication: Back pain
     Route: 048
     Dates: start: 20221115, end: 20221115

REACTIONS (3)
  - Cellulitis streptococcal [Unknown]
  - Epiglottitis [Unknown]
  - Laryngeal necrosis [Unknown]

NARRATIVE: CASE EVENT DATE: 20221101
